FAERS Safety Report 8239749-1 (Version None)
Quarter: 2012Q1

REPORT INFORMATION
  Report Type: 
  Country: None (occurrence: None)
  Receive Date: 20120328
  Receipt Date: 20120319
  Transmission Date: 20120608
  Serious: Yes (Hospitalization)
  Sender: FDA-Public Use
  Company Number: DE-VERTEX PHARMACEUTICALS INC.-AE-2011-004322

PATIENT
  Sex: Female
  Weight: 42 kg

DRUGS (16)
  1. IVACAFTOR [Suspect]
     Route: 048
     Dates: start: 20101110
  2. PULMOZYME [Concomitant]
     Indication: CYSTIC FIBROSIS LUNG
     Dates: start: 20000101
  3. SODIUM CHLORIDE 0.9% [Concomitant]
     Indication: CYSTIC FIBROSIS LUNG
     Dates: start: 20091125
  4. COLISTIN SULFATE [Concomitant]
     Indication: PSEUDOMONAS INFECTION
     Dates: start: 20111114
  5. PIPERACILLIN AND TAZOBACTAM [Concomitant]
     Dates: start: 20111118
  6. ACETYLCYSTEINE [Concomitant]
     Indication: CYSTIC FIBROSIS LUNG
     Dates: start: 20000101
  7. SELENASE [Concomitant]
     Indication: CYSTIC FIBROSIS PANCREATIC
     Route: 048
     Dates: start: 20000101
  8. VITAMIN A [Concomitant]
     Indication: MEDICAL DIET
     Route: 048
     Dates: start: 20110907
  9. AZITHROMYCIN [Concomitant]
     Indication: PSEUDOMONAS INFECTION
     Route: 048
     Dates: start: 20081126
  10. FOSFOMYCIN [Concomitant]
     Dates: start: 20111118
  11. CREON [Concomitant]
     Indication: CYSTIC FIBROSIS PANCREATIC
     Route: 048
     Dates: start: 20000101
  12. VIGANTOTELLEN [Concomitant]
     Indication: MEDICAL DIET
     Route: 048
     Dates: start: 20110907
  13. OPTOVIT [Concomitant]
     Indication: MEDICAL DIET
     Route: 048
     Dates: start: 20110907
  14. IVACAFTOR [Suspect]
     Indication: CYSTIC FIBROSIS
     Route: 048
     Dates: start: 20091209, end: 20101109
  15. SEREVENT [Concomitant]
     Indication: CYSTIC FIBROSIS LUNG
     Dates: start: 20020608
  16. MUCOCLEAR [Concomitant]
     Indication: CYSTIC FIBROSIS LUNG
     Dates: start: 20110907

REACTIONS (2)
  - SEPSIS [None]
  - PNEUMOTHORAX [None]
